FAERS Safety Report 14024056 (Version 1)
Quarter: 2017Q3

REPORT INFORMATION
  Report Type: Spontaneous
  Country: IT (occurrence: IT)
  Receive Date: 20170929
  Receipt Date: 20170929
  Transmission Date: 20171128
  Serious: Yes (Other)
  Sender: FDA-Public Use
  Company Number: IT-JNJFOC-20170925449

PATIENT

DRUGS (1)
  1. DOXORUBICIN HYDROCHLORIDE. [Suspect]
     Active Substance: DOXORUBICIN HYDROCHLORIDE
     Indication: NEOPLASM MALIGNANT
     Route: 065

REACTIONS (17)
  - Nail ridging [Unknown]
  - Onychomadesis [Unknown]
  - Nail pigmentation [Unknown]
  - Onychoclasis [Unknown]
  - Intertrigo [Unknown]
  - Nail discolouration [Unknown]
  - Nail bed bleeding [Unknown]
  - Paronychia [Unknown]
  - Skin toxicity [Unknown]
  - Palmar-plantar erythrodysaesthesia syndrome [Unknown]
  - Rash follicular [Unknown]
  - Hyperkeratosis [Unknown]
  - Mucosal inflammation [Unknown]
  - Mucosal ulceration [Unknown]
  - Onycholysis [Unknown]
  - Nail disorder [Unknown]
  - Pyogenic granuloma [Unknown]
